FAERS Safety Report 7580001-5 (Version None)
Quarter: 2011Q2

REPORT INFORMATION
  Report Type: 
  Country: None (occurrence: None)
  Receive Date: 20110622
  Receipt Date: 20110610
  Transmission Date: 20111010
  Serious: Yes (Life-Threatening, Hospitalization, Other)
  Sender: FDA-Public Use
  Company Number: IDA-00456

PATIENT
  Age: 47 Year
  Sex: Male

DRUGS (7)
  1. (ZOPICLONE) [Concomitant]
  2. SUNITINIB MALATE [Suspect]
     Indication: RENAL CELL CARCINOMA
     Dosage: 50 MG DAILY ORAL
     Route: 048
     Dates: start: 20060113, end: 20060125
  3. PROZAC [Concomitant]
  4. PROPRANOLOL [Suspect]
     Dosage: 10 MG BID ORAL FORMULATION: TABLET
     Route: 048
     Dates: start: 20051214, end: 20060126
  5. ORAMORPH SR [Concomitant]
  6. MORPHINE SULFATE [Concomitant]
  7. GABAPENTIN [Concomitant]

REACTIONS (17)
  - BLOOD PRESSURE FLUCTUATION [None]
  - DIARRHOEA [None]
  - HYPOCALCAEMIA [None]
  - PERICARDIAL EFFUSION [None]
  - ABDOMINAL PAIN UPPER [None]
  - VOMITING [None]
  - PO2 INCREASED [None]
  - BLOOD BICARBONATE DECREASED [None]
  - TORSADE DE POINTES [None]
  - CARDIAC ARREST [None]
  - PCO2 DECREASED [None]
  - HYDRONEPHROSIS [None]
  - VENTRICULAR TACHYCARDIA [None]
  - PARTIAL SEIZURES [None]
  - ALANINE AMINOTRANSFERASE INCREASED [None]
  - PLATELET COUNT DECREASED [None]
  - HEPATOMEGALY [None]
